FAERS Safety Report 7333174-3 (Version None)
Quarter: 2011Q1

REPORT INFORMATION
  Report Type: 
  Country: None (occurrence: None)
  Receive Date: 20110304
  Receipt Date: 20110223
  Transmission Date: 20110831
  Serious: Yes (Hospitalization)
  Sender: FDA-Public Use
  Company Number: US-SANOFI-AVENTIS-2011SA012048

PATIENT
  Age: 81 Year
  Sex: Female

DRUGS (9)
  1. DIABETA [Suspect]
     Route: 048
  2. ZOLOFT [Concomitant]
  3. LASIX [Concomitant]
  4. METOPROLOL [Concomitant]
  5. COZAAR [Concomitant]
  6. WARFARIN [Concomitant]
  7. ZOCOR [Concomitant]
  8. PLAVIX [Suspect]
     Indication: STENT PLACEMENT
     Route: 048
     Dates: start: 20100101
  9. SYNTHROID [Concomitant]

REACTIONS (3)
  - SKIN HAEMORRHAGE [None]
  - BRADYARRHYTHMIA [None]
  - BLOOD GLUCOSE INCREASED [None]
